FAERS Safety Report 23791198 (Version 3)
Quarter: 2024Q2

REPORT INFORMATION
  Report Type: Spontaneous
  Country: US (occurrence: US)
  Receive Date: 20240428
  Receipt Date: 20240531
  Transmission Date: 20240715
  Serious: No
  Sender: FDA-Public Use
  Company Number: US-JNJFOC-20240427872

PATIENT
  Sex: Male

DRUGS (1)
  1. MENS ROGAINE EXTRA STRENGTH [Suspect]
     Active Substance: MINOXIDIL
     Indication: Alopecia
     Dosage: CUP^S WORTH
     Route: 065
     Dates: start: 20240321

REACTIONS (3)
  - Product formulation issue [Unknown]
  - Poor quality product administered [Unknown]
  - Overdose [Unknown]

NARRATIVE: CASE EVENT DATE: 20240321
